FAERS Safety Report 7383446-1 (Version None)
Quarter: 2011Q1

REPORT INFORMATION
  Report Type: 
  Country: None (occurrence: None)
  Receive Date: 20110330
  Receipt Date: 20110318
  Transmission Date: 20110831
  Serious: Yes (Congenital Anomaly)
  Sender: FDA-Public Use
  Company Number: US-JNJFOC-20060704197

PATIENT
  Sex: Male
  Weight: 3.4 kg

DRUGS (2)
  1. TOPAMAX [Suspect]
     Indication: DRUG EXPOSURE DURING PREGNANCY
  2. TOPAMAX [Suspect]

REACTIONS (1)
  - VENTRICULAR SEPTAL DEFECT [None]
